FAERS Safety Report 9513514 (Version 1)
Quarter: 2013Q3

REPORT INFORMATION
  Report Type: Spontaneous
  Country: US (occurrence: US)
  Receive Date: 20130910
  Receipt Date: 20130910
  Transmission Date: 20140515
  Serious: Yes (Other)
  Sender: FDA-Public Use
  Company Number: US-TARO-2013P1011673

PATIENT
  Age: 72 Year
  Sex: Female
  Weight: 53.07 kg

DRUGS (16)
  1. WARFARIN SODIUM TABLETS USP 1MG [Suspect]
     Indication: ATRIAL FIBRILLATION
     Route: 048
     Dates: start: 20130612, end: 20130614
  2. WARFARIN SODIUM TABLETS USP 1MG [Suspect]
     Indication: ATRIAL FIBRILLATION
     Route: 048
     Dates: start: 20130612, end: 20130614
  3. WARFARIN SODIUM TABLETS USP 1MG [Suspect]
     Indication: ATRIAL FIBRILLATION
     Route: 048
     Dates: start: 20130614, end: 20130618
  4. WARFARIN SODIUM TABLETS USP 1MG [Suspect]
     Indication: ATRIAL FIBRILLATION
     Route: 048
     Dates: start: 20130619, end: 20130708
  5. WARFARIN SODIUM TABLETS USP 1MG [Suspect]
     Indication: ATRIAL FIBRILLATION
     Route: 048
     Dates: start: 20130619, end: 20130708
  6. AMBIEN [Concomitant]
     Dates: start: 2006
  7. ATIVAN [Concomitant]
  8. ESTRADIOL [Concomitant]
  9. OTC PEPCID [Concomitant]
  10. SYNTHROID [Concomitant]
  11. TOPROL XL [Concomitant]
  12. ZOCOR [Concomitant]
  13. OTC CLARITIN [Concomitant]
  14. CITRACAL WITH VITAMIN D [Concomitant]
  15. PROBIOTIC ACIDOPHILUS [Concomitant]
  16. WARFARIN SODIUM TABLETS USP 5MG [Suspect]
     Indication: ATRIAL FIBRILLATION
     Route: 048
     Dates: start: 20130607, end: 20130609

REACTIONS (3)
  - Blue toe syndrome [Recovered/Resolved]
  - International normalised ratio increased [Recovered/Resolved]
  - International normalised ratio decreased [Recovered/Resolved]
